FAERS Safety Report 18023575 (Version 1)
Quarter: 2020Q3

REPORT INFORMATION
  Report Type: Report from Study
  Country: US (occurrence: US)
  Receive Date: 20200714
  Receipt Date: 20200714
  Transmission Date: 20201103
  Serious: Yes (Hospitalization)
  Sender: FDA-Public Use
  Company Number: US-ACTELION-A-NJ2020-203479

PATIENT
  Age: 51 Year
  Sex: Male

DRUGS (14)
  1. VITAMIN B1 [Concomitant]
     Active Substance: THIAMINE HYDROCHLORIDE
  2. ATORVASTATIN [Concomitant]
     Active Substance: ATORVASTATIN
  3. OMEPRAZOLE. [Concomitant]
     Active Substance: OMEPRAZOLE
  4. MULTIVITAMIN [Concomitant]
     Active Substance: VITAMINS
  5. OPSUMIT [Suspect]
     Active Substance: MACITENTAN
     Indication: PULMONARY ARTERIAL HYPERTENSION
     Dosage: 10 MG, QD
     Route: 048
     Dates: start: 20200106, end: 20200630
  6. NORCO [Concomitant]
     Active Substance: ACETAMINOPHEN\HYDROCODONE BITARTRATE
  7. FUROSEMIDE. [Concomitant]
     Active Substance: FUROSEMIDE
     Dosage: 60 MG, BID
  8. VITAMIN B12 [Concomitant]
     Active Substance: CYANOCOBALAMIN
  9. TYLENOL [Concomitant]
     Active Substance: ACETAMINOPHEN
  10. FERROUS SULFATE. [Concomitant]
     Active Substance: FERROUS SULFATE
  11. BETAMETASONE DIPROPIONATO [Concomitant]
  12. WARFARIN [Concomitant]
     Active Substance: WARFARIN
  13. FUROSEMIDE. [Concomitant]
     Active Substance: FUROSEMIDE
     Dosage: UNK
  14. METOLAZONE. [Concomitant]
     Active Substance: METOLAZONE

REACTIONS (6)
  - Fluid overload [Unknown]
  - Brain natriuretic peptide abnormal [Unknown]
  - Dyspnoea [Unknown]
  - Acute respiratory failure [Unknown]
  - Oedema peripheral [Unknown]
  - Cardiomegaly [Unknown]

NARRATIVE: CASE EVENT DATE: 20200309
